FAERS Safety Report 22285486 (Version 1)
Quarter: 2023Q2

REPORT INFORMATION
  Report Type: Spontaneous
  Country: CZ (occurrence: CZ)
  Receive Date: 20230504
  Receipt Date: 20230504
  Transmission Date: 20230722
  Serious: Yes (Death, Other)
  Sender: FDA-Public Use
  Company Number: CZ-BoehringerIngelheim-2023-BI-235241

PATIENT
  Age: 61 Year
  Sex: Male

DRUGS (3)
  1. EMPAGLIFLOZIN [Suspect]
     Active Substance: EMPAGLIFLOZIN
     Indication: Type 2 diabetes mellitus
  2. METFORMIN [Concomitant]
     Active Substance: METFORMIN HYDROCHLORIDE
     Indication: Product used for unknown indication
  3. INSULIN NOS [Concomitant]
     Active Substance: INSULIN NOS
     Indication: Product used for unknown indication

REACTIONS (11)
  - Brain injury [Fatal]
  - Cardiac arrest [Unknown]
  - Acute myocardial infarction [Unknown]
  - Anuria [Unknown]
  - Metabolic acidosis [Unknown]
  - Circulatory collapse [Unknown]
  - Lactic acidosis [Unknown]
  - Ketoacidosis [Unknown]
  - Acidosis hyperchloraemic [Unknown]
  - Ventricular fibrillation [Unknown]
  - Coronary artery stenosis [Unknown]
